FAERS Safety Report 16934432 (Version 1)
Quarter: 2019Q4

REPORT INFORMATION
  Report Type: Spontaneous
  Country: US (occurrence: US)
  Receive Date: 20191018
  Receipt Date: 20191018
  Transmission Date: 20200122
  Serious: Yes (Life-Threatening, Hospitalization)
  Sender: FDA-Public Use
  Company Number: US-MYLANLABS-2019M1097424

PATIENT
  Age: 53 Year
  Sex: Male

DRUGS (2)
  1. DECITABINE. [Suspect]
     Active Substance: DECITABINE
     Indication: MYELODYSPLASTIC SYNDROME
     Route: 065
  2. DECITABINE. [Suspect]
     Active Substance: DECITABINE
     Indication: CHRONIC LEUKAEMIA

REACTIONS (2)
  - Respiratory failure [Recovering/Resolving]
  - Acute respiratory distress syndrome [Recovering/Resolving]
